FAERS Safety Report 5816171-6 (Version None)
Quarter: 2008Q3

REPORT INFORMATION
  Report Type: 
  Country: None (occurrence: None)
  Receive Date: 20080721
  Receipt Date: 20080716
  Transmission Date: 20090109
  Serious: Yes (Hospitalization)
  Sender: FDA-Public Use
  Company Number: A0725875A

PATIENT
  Age: 12 Year
  Sex: Female
  Weight: 57.7 kg

DRUGS (7)
  1. ADVAIR DISKUS 100/50 [Suspect]
     Indication: ASTHMA
     Route: 055
     Dates: end: 20071203
  2. ALBUTEROL [Concomitant]
  3. FLONASE [Concomitant]
  4. PULMICORT-100 [Concomitant]
  5. PREDNISONE TAB [Concomitant]
  6. AMOXICILLIN [Concomitant]
  7. XOPENEX [Concomitant]

REACTIONS (2)
  - BRONCHOSPASM [None]
  - COUGH [None]
